FAERS Safety Report 16118690 (Version 1)
Quarter: 2019Q1

REPORT INFORMATION
  Report Type: Spontaneous
  Country: FR (occurrence: FR)
  Receive Date: 20190326
  Receipt Date: 20190326
  Transmission Date: 20190418
  Serious: Yes (Hospitalization)
  Sender: FDA-Public Use
  Company Number: PHHY2019FR063748

PATIENT
  Age: 14 Year
  Sex: Female

DRUGS (1)
  1. RITALINE [Suspect]
     Active Substance: METHYLPHENIDATE HYDROCHLORIDE
     Indication: INTENTIONAL PRODUCT MISUSE
     Dosage: 5 DF, 1 TOTAL
     Route: 048

REACTIONS (3)
  - Vertigo [Recovered/Resolved]
  - Intentional product misuse [Recovered/Resolved]
  - Asthenia [Recovered/Resolved]
